FAERS Safety Report 8156314-5 (Version None)
Quarter: 2012Q1

REPORT INFORMATION
  Report Type: 
  Country: None (occurrence: None)
  Receive Date: 20120221
  Receipt Date: 20120221
  Transmission Date: 20120608
  Serious: Yes (Hospitalization)
  Sender: FDA-Public Use
  Company Number: None

PATIENT
  Sex: Female
  Weight: 63.6 kg

DRUGS (7)
  1. IRINOTECAN HCL [Suspect]
     Indication: PANCREATIC CARCINOMA
     Dosage: 180MG/M2 EVERY 2 WEEKS IV
     Route: 042
     Dates: start: 20111228
  2. IRINOTECAN HCL [Suspect]
     Indication: PANCREATIC CARCINOMA
     Dosage: 180MG/M2 EVERY 2 WEEKS IV
     Route: 042
     Dates: start: 20120117
  3. IRINOTECAN HCL [Suspect]
     Indication: PANCREATIC CARCINOMA
     Dosage: 180MG/M2 EVERY 2 WEEKS IV
     Route: 042
     Dates: start: 20120131
  4. FLUOROURACIL [Concomitant]
  5. OXALIPLATIN [Suspect]
     Indication: PANCREATIC CARCINOMA
     Dosage: 85MG/M2 EVERY 2 WEEKS IV
     Route: 042
     Dates: start: 20120117
  6. OXALIPLATIN [Suspect]
     Indication: PANCREATIC CARCINOMA
     Dosage: 85MG/M2 EVERY 2 WEEKS IV
     Route: 042
     Dates: start: 20111228
  7. OXALIPLATIN [Suspect]
     Indication: PANCREATIC CARCINOMA
     Dosage: 85MG/M2 EVERY 2 WEEKS IV
     Route: 042
     Dates: start: 20120131

REACTIONS (1)
  - FEBRILE NEUTROPENIA [None]
